FAERS Safety Report 10180317 (Version 1)
Quarter: 2014Q2

REPORT INFORMATION
  Report Type: Spontaneous
  Country: US (occurrence: None)
  Receive Date: 20140425
  Receipt Date: 20140425
  Transmission Date: 20141212
  Serious: No
  Sender: FDA-Public Use
  Company Number: AP356-00377-SPO-US

PATIENT
  Age: 36 Year
  Sex: Female
  Weight: 78 kg

DRUGS (3)
  1. BELVIQ [Suspect]
     Indication: WEIGHT DECREASED
     Route: 048
     Dates: start: 20140106, end: 20140114
  2. SYNTHROID (LEVOTHYROXINE SODIUM) [Suspect]
  3. YAZ (DROSPIRENONE W/ ETHINYLESTRADIOL) [Concomitant]

REACTIONS (1)
  - Photophobia [None]
